FAERS Safety Report 4522653-X (Version None)
Quarter: 2004Q4

REPORT INFORMATION
  Report Type: 
  Country: None (occurrence: None)
  Receive Date: 20041207
  Receipt Date: 20041122
  Transmission Date: 20050328
  Serious: Yes (Death)
  Sender: FDA-Public Use
  Company Number: 2004SE06147

PATIENT
  Age: 19 Year
  Sex: Male
  Weight: 84 kg

DRUGS (6)
  1. SEROQUEL [Suspect]
     Indication: PSYCHOTIC DISORDER
     Dosage: 600 MG DAILY PO
     Route: 048
     Dates: start: 20021011
  2. SUBUTEX [Suspect]
  3. RIVOTRIL [Concomitant]
  4. TRUXAL [Concomitant]
  5. BURONIL [Concomitant]
  6. IMOVANE [Concomitant]

REACTIONS (1)
  - DEATH [None]
